FAERS Safety Report 6363430-7 (Version None)
Quarter: 2009Q3

REPORT INFORMATION
  Report Type: 
  Country: None (occurrence: None)
  Receive Date: 20090919
  Receipt Date: 20090625
  Transmission Date: 20100115
  Serious: No
  Sender: FDA-Public Use
  Company Number: US-ABBOTT-09P-163-0581932-00

PATIENT
  Sex: Female
  Weight: 113.5 kg

DRUGS (3)
  1. HUMIRA [Suspect]
     Indication: PSORIASIS
     Dates: start: 20090619
  2. HUMIRA [Suspect]
     Indication: PSORIATIC ARTHROPATHY
  3. UNKNOWN [Concomitant]
     Indication: DRUG USE FOR UNKNOWN INDICATION
     Route: 061

REACTIONS (4)
  - DIZZINESS [None]
  - FATIGUE [None]
  - MYALGIA [None]
  - NAUSEA [None]
